FAERS Safety Report 5308681-5 (Version None)
Quarter: 2007Q2

REPORT INFORMATION
  Report Type: 
  Country: None (occurrence: None)
  Receive Date: 20070426
  Receipt Date: 20070424
  Transmission Date: 20071010
  Serious: Yes (Death)
  Sender: FDA-Public Use
  Company Number: US-GLAXOSMITHKLINE-A0648526A

PATIENT
  Age: 42 Year
  Sex: Female

DRUGS (2)
  1. REQUIP [Suspect]
     Indication: RESTLESS LEGS SYNDROME
     Route: 048
     Dates: start: 20070228
  2. CONCURRENT MEDICATIONS [Concomitant]

REACTIONS (7)
  - DEATH [None]
  - FATIGUE [None]
  - HALLUCINATION [None]
  - OEDEMA PERIPHERAL [None]
  - OVERDOSE [None]
  - SOMNOLENCE [None]
  - SWELLING [None]
